FAERS Safety Report 17693896 (Version 3)
Quarter: 2020Q2

REPORT INFORMATION
  Report Type: Report from Study
  Country: None (occurrence: US)
  Receive Date: 20200422
  Receipt Date: 20200514
  Transmission Date: 20200714
  Serious: Yes (Other)
  Sender: FDA-Public Use
  Company Number: US-BIOVITRUM-2019US4649

PATIENT
  Age: 71 Year
  Sex: Female

DRUGS (4)
  1. KINERET [Suspect]
     Active Substance: ANAKINRA
     Indication: RHEUMATOID ARTHRITIS
     Route: 058
     Dates: start: 20191112
  2. HYDROCODONE [Concomitant]
     Active Substance: HYDROCODONE
     Indication: PRODUCT USED FOR UNKNOWN INDICATION
  3. KINERET [Suspect]
     Active Substance: ANAKINRA
     Indication: STILL^S DISEASE
     Route: 058
     Dates: start: 20191111
  4. CRESTOR [Concomitant]
     Active Substance: ROSUVASTATIN CALCIUM
     Indication: PRODUCT USED FOR UNKNOWN INDICATION

REACTIONS (26)
  - Injection site pruritus [Unknown]
  - Peripheral swelling [Unknown]
  - Joint swelling [Unknown]
  - Sinusitis [Unknown]
  - Abdominal pain [Unknown]
  - Skin lesion [Unknown]
  - Still^s disease [Unknown]
  - Fatigue [Unknown]
  - Weight increased [Unknown]
  - Rash [Unknown]
  - Condition aggravated [Unknown]
  - Pain [Unknown]
  - Oropharyngeal pain [Unknown]
  - Off label use [Unknown]
  - Pyrexia [Unknown]
  - Skin plaque [Unknown]
  - Injection site urticaria [Unknown]
  - Injection site pain [Unknown]
  - Injection site erythema [Unknown]
  - Intentional product misuse [Unknown]
  - Arthralgia [Unknown]
  - Cardiomegaly [Unknown]
  - Discomfort [Unknown]
  - Frustration tolerance decreased [Unknown]
  - Skin exfoliation [Unknown]
  - Musculoskeletal stiffness [Unknown]

NARRATIVE: CASE EVENT DATE: 20191112
